FAERS Safety Report 25249770 (Version 1)
Quarter: 2025Q2

REPORT INFORMATION
  Report Type: Spontaneous
  Country: US (occurrence: None)
  Receive Date: 20250428
  Receipt Date: 20250428
  Transmission Date: 20250717
  Serious: Yes (Other)
  Sender: FDA-CTU
  Company Number: None

PATIENT
  Age: 61 Year
  Sex: Female

DRUGS (4)
  1. BIMZELX [Suspect]
     Active Substance: BIMEKIZUMAB-BKZX
     Route: 058
  2. DULOXETINE [Concomitant]
     Active Substance: DULOXETINE
  3. MOMETASONE [Concomitant]
     Active Substance: MOMETASONE
  4. IBUPROFEN [Concomitant]
     Active Substance: IBUPROFEN

REACTIONS (1)
  - Therapy change [None]

NARRATIVE: CASE EVENT DATE: 20241227
